FAERS Safety Report 8727791 (Version 4)
Quarter: 2012Q4

REPORT INFORMATION
  Report Type: 
  Country: US (occurrence: US)
  Receive Date: 20120816
  Receipt Date: 20121218
  Transmission Date: 20130627
  Serious: Yes (Hospitalization)
  Sender: FDA-Public Use
  Company Number: US-PFIZER INC-2012063272

PATIENT
  Age: 67 Year
  Sex: Female
  Weight: 70.75 kg

DRUGS (6)
  1. LYRICA [Suspect]
     Indication: NERVE PAIN
     Dosage: 150 mg (two capsules of 75mg), 2x/day
     Route: 048
     Dates: start: 2010, end: 20120809
  2. ZOLOFT [Suspect]
     Dosage: UNK
  3. MORPHINE [Concomitant]
     Indication: BACK INJURY
     Dosage: 100 mg, 2x/day
  4. SYMBICORT [Concomitant]
     Indication: ASTHMA
     Dosage: UNK, 2x/day
  5. PROAIR HFA [Concomitant]
     Indication: ASTHMA
     Dosage: UNK
  6. FLEXERIL [Concomitant]
     Dosage: 10 mg, as needed

REACTIONS (6)
  - Back disorder [Unknown]
  - Hypokinesia [Unknown]
  - Neuralgia [Unknown]
  - Hyperhidrosis [Unknown]
  - Malaise [Unknown]
  - Withdrawal syndrome [Unknown]
